FAERS Safety Report 8003058-6 (Version None)
Quarter: 2011Q4

REPORT INFORMATION
  Report Type: 
  Country: None (occurrence: None)
  Receive Date: 20111222
  Receipt Date: 20111212
  Transmission Date: 20120403
  Serious: Yes (Other)
  Sender: FDA-Public Use
  Company Number: US-WATSON-2011-21588

PATIENT
  Age: 38 Year
  Sex: Female

DRUGS (2)
  1. ANTIBIOTIC [Suspect]
     Indication: PRODUCT USED FOR UNKNOWN INDICATION
     Dosage: UNK
     Route: 065
  2. LEVONORGESTREL [Suspect]
     Indication: PRODUCT USED FOR UNKNOWN INDICATION
     Dosage: UNK
     Route: 048
     Dates: start: 20111101

REACTIONS (5)
  - VAGINAL HAEMORRHAGE [None]
  - PREGNANCY ON ORAL CONTRACEPTIVE [None]
  - ECTOPIC PREGNANCY [None]
  - ABORTION SPONTANEOUS [None]
  - DRUG INEFFECTIVE [None]
